FAERS Safety Report 4312796-8 (Version None)
Quarter: 2004Q1

REPORT INFORMATION
  Report Type: 
  Country: None (occurrence: None)
  Receive Date: 20040304
  Receipt Date: 20040223
  Transmission Date: 20041129
  Serious: Yes (Other)
  Sender: FDA-Public Use
  Company Number: 2004196889CA

PATIENT
  Age: 55 Year
  Sex: Female
  Weight: 92.1 kg

DRUGS (1)
  1. BEXTRA [Suspect]
     Indication: ARTHRITIS
     Dosage: 20 MG, QD, ORAL
     Route: 048
     Dates: start: 20031001

REACTIONS (5)
  - BODY TEMPERATURE INCREASED [None]
  - ERYTHEMA MULTIFORME [None]
  - NAUSEA [None]
  - URTICARIA GENERALISED [None]
  - VOMITING [None]
